FAERS Safety Report 24453658 (Version 2)
Quarter: 2024Q4

REPORT INFORMATION
  Report Type: Report from Study
  Country: ZA (occurrence: ZA)
  Receive Date: 20241017
  Receipt Date: 20241018
  Transmission Date: 20250115
  Serious: No
  Sender: ROCHE
  Company Number: ZA-ROCHE-3206883

PATIENT
  Age: 64 Year
  Sex: Female
  Weight: 105.0 kg

DRUGS (3)
  1. RITUXIMAB [Suspect]
     Active Substance: RITUXIMAB
     Indication: Rheumatoid arthritis
     Dosage: 14 DAYS INTERVAL.
     Route: 041
     Dates: start: 202203
  2. RITUXIMAB [Suspect]
     Active Substance: RITUXIMAB
     Indication: Systemic lupus erythematosus
     Dosage: EVERY 6 MONTHS
     Route: 041
     Dates: start: 20220510
  3. RITUXIMAB [Suspect]
     Active Substance: RITUXIMAB
     Indication: Interstitial lung disease

REACTIONS (4)
  - C-reactive protein increased [Unknown]
  - Blood creatinine increased [Unknown]
  - Inflammatory marker increased [Unknown]
  - Haemoglobin increased [Unknown]
